FAERS Safety Report 5507246-X (Version None)
Quarter: 2007Q4

REPORT INFORMATION
  Report Type: 
  Country: None (occurrence: None)
  Receive Date: 20071105
  Receipt Date: 20071105
  Transmission Date: 20080405
  Serious: Yes (Hospitalization)
  Sender: FDA-Public Use
  Company Number: None

PATIENT
  Age: 74 Year
  Sex: Male
  Weight: 75.2 kg

DRUGS (4)
  1. METFORMIN HCL [Suspect]
     Indication: TYPE 2 DIABETES MELLITUS
     Dosage: 500MG PO QDAY
     Route: 048
     Dates: start: 20030201
  2. ASPIRIN [Concomitant]
  3. LANTUS [Suspect]
  4. ALTACE [Concomitant]

REACTIONS (4)
  - GASTROINTESTINAL ISCHAEMIA [None]
  - HYPOPERFUSION [None]
  - METABOLIC ACIDOSIS [None]
  - RENAL IMPAIRMENT [None]
